FAERS Safety Report 18756058 (Version 1)
Quarter: 2021Q1

REPORT INFORMATION
  Report Type: Spontaneous
  Country: FR (occurrence: FR)
  Receive Date: 20210119
  Receipt Date: 20210119
  Transmission Date: 20210419
  Serious: Yes (Hospitalization)
  Sender: FDA-Public Use
  Company Number: FR-009507513-2101FRA008573

PATIENT
  Age: 55 Year
  Sex: Male
  Weight: 54 kg

DRUGS (2)
  1. RISPERIDONE. [Suspect]
     Active Substance: RISPERIDONE
     Dosage: UNK
     Route: 048
     Dates: start: 20201211, end: 20201217
  2. MIRTAZAPINE. [Suspect]
     Active Substance: MIRTAZAPINE
     Dosage: UNK
     Route: 048
     Dates: start: 20201211, end: 20201217

REACTIONS (2)
  - Tachypnoea [Recovered/Resolved]
  - Coma [Recovered/Resolved]

NARRATIVE: CASE EVENT DATE: 20201217
